FAERS Safety Report 5148174-1 (Version None)
Quarter: 2006Q4

REPORT INFORMATION
  Report Type: 
  Country: None (occurrence: None)
  Receive Date: 20061106
  Receipt Date: 20061025
  Transmission Date: 20070319
  Serious: Yes (Hospitalization, Other)
  Sender: FDA-Public Use
  Company Number: 061013-0000879

PATIENT
  Age: 31 Year
  Sex: Female

DRUGS (6)
  1. DACTINOMYCIN [Suspect]
     Indication: CHORIOCARCINOMA
     Dosage: SEE IMAGE
     Dates: start: 20040322, end: 20040615
  2. METHOTREXATE [Suspect]
     Indication: CHORIOCARCINOMA
     Dosage: 100 MG/M2;THEN 200MG/M2 OVER 12HR ON DAY1 FOR 7 CYCLES
  3. VINCRISTINE [Suspect]
     Indication: CHORIOCARCINOMA
     Dosage: 1 MG;ON DAY 8 FOR 7 CYCLES
  4. CYCLOPHOSPHAMIDE [Suspect]
     Indication: CHORIOCARCINOMA
     Dosage: 600 MG/M2;DAY 8 FOR 7 CYCLES
  5. ETOPOSIDE [Suspect]
     Indication: CHORIOCARCINOMA
     Dosage: 100 MG/M2;DAYS 1 + 2 FOR 7 CYCLES
  6. LEUCOVORIN CALCIUM [Concomitant]

REACTIONS (3)
  - DRUG INEFFECTIVE [None]
  - INTERSTITIAL LUNG DISEASE [None]
  - RESPIRATORY FAILURE [None]
